FAERS Safety Report 12264146 (Version 1)
Quarter: 2016Q2

REPORT INFORMATION
  Report Type: Spontaneous
  Country: US (occurrence: US)
  Receive Date: 20160413
  Receipt Date: 20160413
  Transmission Date: 20160815
  Serious: No
  Sender: FDA-Public Use
  Company Number: US-JNJFOC-20160329338

PATIENT
  Age: 38 Year
  Sex: Male
  Weight: 92.99 kg

DRUGS (2)
  1. MOTRIN [Suspect]
     Active Substance: IBUPROFEN
     Indication: PRODUCT USED FOR UNKNOWN INDICATION
     Dosage: USED DROPPER AND SQUEEZE DROP INTO MOUTH
     Route: 048
  2. MOTRIN [Suspect]
     Active Substance: IBUPROFEN
     Route: 048

REACTIONS (5)
  - Off label use [Unknown]
  - Drug administered to patient of inappropriate age [Unknown]
  - Oral discomfort [Recovered/Resolved]
  - Product use issue [Unknown]
  - Product taste abnormal [Unknown]
